FAERS Safety Report 6356230-5 (Version None)
Quarter: 2009Q3

REPORT INFORMATION
  Report Type: 
  Country: None (occurrence: None)
  Receive Date: 20090915
  Receipt Date: 20090820
  Transmission Date: 20100115
  Serious: No
  Sender: FDA-Public Use
  Company Number: US-BAYER-200930737NA

PATIENT
  Age: 69 Year
  Sex: Male

DRUGS (4)
  1. MAGNEVIST [Suspect]
     Indication: NUCLEAR MAGNETIC RESONANCE IMAGING
     Dosage: TOTAL DAILY DOSE: 18 ML  UNIT DOSE: 100 ML
     Route: 042
     Dates: start: 20090820, end: 20090820
  2. SOMA [Concomitant]
  3. IBUPROFEN [Concomitant]
  4. TYLENOL (CAPLET) [Concomitant]

REACTIONS (1)
  - URTICARIA [None]
